FAERS Safety Report 5908348-6 (Version None)
Quarter: 2008Q3

REPORT INFORMATION
  Report Type: 
  Country: None (occurrence: None)
  Receive Date: 20080930
  Receipt Date: 20080915
  Transmission Date: 20090109
  Serious: Yes (Hospitalization)
  Sender: FDA-Public Use
  Company Number: SPV1-2008-02071

PATIENT
  Age: 29 Year
  Sex: Female
  Weight: 73 kg

DRUGS (7)
  1. PENTASA [Suspect]
     Indication: DRUG USE FOR UNKNOWN INDICATION
     Dosage: 4 X 500 MG  TABLETS, 2X/DAY; BID; ORAL
     Route: 048
     Dates: start: 20060706, end: 20070228
  2. PENTASA [Suspect]
     Indication: DRUG USE FOR UNKNOWN INDICATION
     Dosage: 4 X 500 MG  TABLETS, 2X/DAY; BID; ORAL
     Route: 048
     Dates: start: 20060728, end: 20070305
  3. MERCAPTOPURINE [Suspect]
     Indication: CROHN'S DISEASE
     Dosage: 100 MG, 1X/DAY;QD; ORAL, 150 MG, 1X/DAYQD, ORAL,
     Dates: end: 20070101
  4. MERCAPTOPURINE [Suspect]
     Indication: CROHN'S DISEASE
     Dosage: 100 MG, 1X/DAY;QD; ORAL, 150 MG, 1X/DAYQD, ORAL,
     Dates: start: 20070101, end: 20070226
  5. MERCAPTOPURINE [Suspect]
     Indication: CROHN'S DISEASE
     Dosage: 100 MG, 1X/DAY;QD; ORAL, 150 MG, 1X/DAYQD, ORAL,
     Dates: start: 20070226, end: 20070305
  6. PREDNISONE [Concomitant]
  7. CHLORDIAZEPOXIDE [Concomitant]

REACTIONS (11)
  - ALANINE AMINOTRANSFERASE INCREASED [None]
  - ASPARTATE AMINOTRANSFERASE INCREASED [None]
  - BLOOD BILIRUBIN INCREASED [None]
  - BLOOD LACTATE DEHYDROGENASE INCREASED [None]
  - DRUG INTERACTION [None]
  - FATIGUE [None]
  - HAEMOGLOBIN DECREASED [None]
  - NAUSEA [None]
  - OFF LABEL USE [None]
  - PALMAR-PLANTAR ERYTHRODYSAESTHESIA SYNDROME [None]
  - WHITE BLOOD CELL COUNT DECREASED [None]
